FAERS Safety Report 20727514 (Version 1)
Quarter: 2022Q2

REPORT INFORMATION
  Report Type: Other
  Country: US (occurrence: None)
  Receive Date: 20220419
  Receipt Date: 20220419
  Transmission Date: 20220721
  Serious: No
  Sender: FDA-Public Use
  Company Number: US-ROCHE-2894722

PATIENT
  Age: 35 Year
  Sex: Female

DRUGS (3)
  1. BEVACIZUMAB [Suspect]
     Active Substance: BEVACIZUMAB
     Indication: Macular dystrophy congenital
     Route: 050
  2. TRIAMCINOLONE [Suspect]
     Active Substance: TRIAMCINOLONE
     Indication: Macular dystrophy congenital
     Route: 050
  3. RANIBIZUMAB [Suspect]
     Active Substance: RANIBIZUMAB
     Indication: Macular dystrophy congenital
     Route: 050

REACTIONS (4)
  - Off label use [Unknown]
  - Off label use [Unknown]
  - Haemorrhage [Unknown]
  - Secretion discharge [Unknown]
